FAERS Safety Report 17882125 (Version 2)
Quarter: 2020Q2

REPORT INFORMATION
  Report Type: Spontaneous
  Country: GB (occurrence: GB)
  Receive Date: 20200610
  Receipt Date: 20200626
  Transmission Date: 20200714
  Serious: Yes (Death, Disabling)
  Sender: FDA-Public Use
  Company Number: NVSC2020GB160985

PATIENT
  Age: 59 Year
  Sex: Male

DRUGS (3)
  1. DOXYCYCLINE. [Suspect]
     Active Substance: DOXYCYCLINE
     Indication: COUGH
     Dosage: 200 MG
     Route: 065
     Dates: start: 20200316
  2. DOXYCYCLINE. [Suspect]
     Active Substance: DOXYCYCLINE
     Dosage: 100 MG
     Route: 065
     Dates: start: 20200317
  3. MOMETASONE [Concomitant]
     Active Substance: MOMETASONE
     Indication: NASAL CONGESTION
     Dosage: EACH NOSTRIL
     Route: 045
     Dates: start: 20200310

REACTIONS (12)
  - Myocardial infarction [Fatal]
  - Dysstasia [Fatal]
  - Body temperature decreased [Fatal]
  - Fatigue [Fatal]
  - Malaise [Fatal]
  - Drug ineffective [Fatal]
  - Chest discomfort [Fatal]
  - Pallor [Fatal]
  - Cardiac disorder [Fatal]
  - Coronary artery thrombosis [Fatal]
  - Hyperhidrosis [Fatal]
  - Myalgia [Fatal]

NARRATIVE: CASE EVENT DATE: 20200316
